FAERS Safety Report 4826839-6 (Version None)
Quarter: 2005Q4

REPORT INFORMATION
  Report Type: 
  Country: None (occurrence: None)
  Receive Date: 20051014
  Receipt Date: 20050705
  Transmission Date: 20060501
  Serious: No
  Sender: FDA-Public Use
  Company Number: 2005SP001723

PATIENT
  Age: 79 Year
  Sex: Male

DRUGS (9)
  1. LUNESTA [Suspect]
     Indication: INSOMNIA
     Dosage: 2 MG;HS;ORAL
     Route: 048
     Dates: start: 20050101, end: 20050101
  2. TAMSULOSIN [Concomitant]
  3. HYDROCHLOROTHIAZIDE [Concomitant]
  4. MICARDIS [Concomitant]
  5. ATENOLOL [Concomitant]
  6. NIASPAN [Concomitant]
  7. ATORVASTATIN CALCIUM [Concomitant]
  8. ASPIRIN [Concomitant]
  9. SAW PALMETTO [Concomitant]

REACTIONS (2)
  - DRUG INEFFECTIVE [None]
  - INSOMNIA [None]
